FAERS Safety Report 7735024-X (Version None)
Quarter: 2011Q3

REPORT INFORMATION
  Report Type: 
  Country: None (occurrence: None)
  Receive Date: 20110817
  Receipt Date: 20110308
  Transmission Date: 20111222
  Serious: Yes (Hospitalization, Other)
  Sender: FDA-Public Use
  Company Number: 201110187

PATIENT
  Sex: Female
  Weight: 52.1637 kg

DRUGS (1)
  1. LIORESAL [Suspect]
     Indication: MUSCLE SPASTICITY
     Dosage: DAILY, INTRATHECAL
     Route: 037

REACTIONS (5)
  - HOSPITALISATION [None]
  - PAIN [None]
  - ANXIETY [None]
  - RESTLESSNESS [None]
  - THERAPEUTIC RESPONSE DECREASED [None]
